FAERS Safety Report 8541887-0 (Version None)
Quarter: 2012Q3

REPORT INFORMATION
  Report Type: 
  Country: None (occurrence: None)
  Receive Date: 20120726
  Receipt Date: 20110922
  Transmission Date: 20120928
  Serious: No
  Sender: FDA-Public Use
  Company Number: US-ASTRAZENECA-2011SE54517

PATIENT
  Age: 24 Year
  Sex: Male
  Weight: 78 kg

DRUGS (3)
  1. SEROQUEL [Suspect]
     Route: 048
     Dates: start: 20100101, end: 20100101
  2. SEROQUEL [Suspect]
     Route: 048
  3. SEROQUEL [Suspect]
     Indication: BIPOLAR DISORDER
     Route: 048
     Dates: start: 20081101

REACTIONS (8)
  - IRRITABILITY [None]
  - AFFECTIVE DISORDER [None]
  - DRUG DOSE OMISSION [None]
  - ANGER [None]
  - DRUG INEFFECTIVE [None]
  - AGGRESSION [None]
  - PERSONALITY CHANGE [None]
  - INSOMNIA [None]
